FAERS Safety Report 6039460-1 (Version None)
Quarter: 2009Q1

REPORT INFORMATION
  Report Type: 
  Country: None (occurrence: None)
  Receive Date: 20090114
  Receipt Date: 20090106
  Transmission Date: 20090719
  Serious: Yes (Hospitalization)
  Sender: FDA-Public Use
  Company Number: 2009SP000384

PATIENT
  Age: 75 Year
  Sex: Male
  Weight: 79.2 kg

DRUGS (10)
  1. TEMOZOLOMIDE [Suspect]
     Indication: METASTATIC MALIGNANT MELANOMA
     Dosage: PO
     Route: 048
     Dates: start: 20070101, end: 20081117
  2. ABT-988     (INVESTIGATIONAL DRUG) [Suspect]
     Indication: METASTATIC MALIGNANT MELANOMA
     Dates: start: 20070101, end: 20081117
  3. MODURETIC 5-50 [Concomitant]
  4. GLUCOSAMINE [Concomitant]
  5. ERGOCALCIFEROL [Concomitant]
  6. SENNOSIDES [Concomitant]
  7. IBUPROFEN TABLETS [Concomitant]
  8. CLINDAMYCIN PHOSPHATE [Concomitant]
  9. TRAMADOL HYDROCHLORIDE [Concomitant]
  10. PROCHLORPERAZINE EDISYLATE [Concomitant]

REACTIONS (7)
  - BACTERIA URINE IDENTIFIED [None]
  - CONSTIPATION [None]
  - DYSPEPSIA [None]
  - FATIGUE [None]
  - FEBRILE NEUTROPENIA [None]
  - PNEUMONIA [None]
  - WHITE BLOOD CELL COUNT DECREASED [None]
